FAERS Safety Report 4524048-1 (Version None)
Quarter: 2004Q4

REPORT INFORMATION
  Report Type: 
  Country: None (occurrence: None)
  Receive Date: 20041119
  Receipt Date: 20040920
  Transmission Date: 20050328
  Serious: No
  Sender: FDA-Public Use
  Company Number: PHEH2004US09013

PATIENT
  Age: 47 Year
  Sex: Female
  Weight: 96.1 kg

DRUGS (5)
  1. ZELNORM [Suspect]
     Indication: CONSTIPATION
     Dosage: 1/2 6MG BID, ORAL
     Route: 048
     Dates: start: 20040701
  2. AMLODIPINE [Concomitant]
  3. PROTONIX [Concomitant]
  4. PEPCID [Concomitant]
  5. IMITREX ^GLAXO WELLCOME^ (SUMATRIPTAN SUCCINATE) [Concomitant]

REACTIONS (3)
  - ABDOMINAL PAIN UPPER [None]
  - FATIGUE [None]
  - SOMNOLENCE [None]
